FAERS Safety Report 5964293-1 (Version None)
Quarter: 2008Q4

REPORT INFORMATION
  Report Type: 
  Country: None (occurrence: None)
  Receive Date: 20081124
  Receipt Date: 20081118
  Transmission Date: 20090506
  Serious: Yes (Other)
  Sender: FDA-Public Use
  Company Number: GB-ABBOTT-08P-167-0488400-00

PATIENT
  Age: 38 Year
  Sex: Female
  Weight: 85.5 kg

DRUGS (2)
  1. HUMIRA [Suspect]
     Indication: RHEUMATOID ARTHRITIS
     Route: 058
     Dates: start: 20080929, end: 20081013
  2. IBUPROFEN TABLETS [Concomitant]
     Indication: ANALGESIA

REACTIONS (3)
  - LIP OEDEMA [None]
  - RASH GENERALISED [None]
  - SWELLING FACE [None]
